FAERS Safety Report 15038571 (Version 1)
Quarter: 2018Q2

REPORT INFORMATION
  Report Type: Spontaneous
  Country: US (occurrence: US)
  Receive Date: 20180620
  Receipt Date: 20180620
  Transmission Date: 20180711
  Serious: No
  Sender: FDA-Public Use
  Company Number: US-BRAEBURN PHARMACEUTICALS, INC.-2018BBN00014

PATIENT
  Age: 56 Year
  Sex: Male
  Weight: 107.48 kg

DRUGS (5)
  1. LAMICTAL [Concomitant]
     Active Substance: LAMOTRIGINE
     Dosage: 300 MG, 1X/DAY
  2. PROBUPHINE [Suspect]
     Active Substance: BUPRENORPHINE HYDROCHLORIDE
     Indication: DRUG USE DISORDER
     Dosage: 4 RODS, LEFT MEDIAL UPPER ARM
     Route: 059
     Dates: start: 20180123, end: 20180410
  3. FLUOXETINE [Concomitant]
     Active Substance: FLUOXETINE HYDROCHLORIDE
     Dosage: 40 MG, 1X/DAY
  4. PEPCID [Concomitant]
     Active Substance: FAMOTIDINE
     Dosage: 40 MG, 1X/DAY AS NEEDED
  5. ARIPIPRAZOLE. [Concomitant]
     Active Substance: ARIPIPRAZOLE
     Dosage: 5 MG, 1X/DAY AS NEEDED

REACTIONS (4)
  - Complication of device removal [Not Recovered/Not Resolved]
  - Incorrect drug administration duration [Recovered/Resolved]
  - Intentional product misuse [Recovered/Resolved]
  - Device breakage [Not Recovered/Not Resolved]

NARRATIVE: CASE EVENT DATE: 2018
